FAERS Safety Report 4697489-X (Version None)
Quarter: 2005Q2

REPORT INFORMATION
  Report Type: 
  Country: None (occurrence: None)
  Receive Date: 20050620
  Receipt Date: 20050426
  Transmission Date: 20051028
  Serious: Yes (Other)
  Sender: FDA-Public Use
  Company Number: US-JNJFOC-20041002040

PATIENT
  Age: 38 Year
  Sex: Female
  Weight: 84.8226 kg

DRUGS (2)
  1. ORTHO EVRA [Suspect]
     Indication: CONTRACEPTION
     Dosage: 1 DOSE(S), 3 IN 4 WEEK, TRANSDERMAL
     Route: 062
     Dates: end: 20040919
  2. ALBUTEROL [Concomitant]

REACTIONS (4)
  - APPLICATION SITE DERMATITIS [None]
  - DRUG EXPOSURE DURING PREGNANCY [None]
  - STOMACH DISCOMFORT [None]
  - UNINTENDED PREGNANCY [None]
